FAERS Safety Report 15577925 (Version 11)
Quarter: 2020Q4

REPORT INFORMATION
  Report Type: Spontaneous
  Country: US (occurrence: US)
  Receive Date: 20181102
  Receipt Date: 20201021
  Transmission Date: 20210113
  Serious: Yes (Death)
  Sender: FDA-Public Use
  Company Number: US-PFIZER INC-2018441506

PATIENT
  Age: 46 Year
  Sex: Female

DRUGS (4)
  1. MONTELUKAST [Concomitant]
     Active Substance: MONTELUKAST SODIUM
     Dosage: 10 MG, 1X/DAY
  2. METFORMIN [Concomitant]
     Active Substance: METFORMIN HYDROCHLORIDE
     Dosage: 500 MG, 1X/DAY
  3. LYRICA [Suspect]
     Active Substance: PREGABALIN
     Indication: FIBROMYALGIA
     Dosage: 225 MG, 4X/DAY
     Route: 048
     Dates: start: 2007
  4. XANAX [Concomitant]
     Active Substance: ALPRAZOLAM
     Dosage: 0.1 MG, 3X/DAY

REACTIONS (6)
  - Death [Fatal]
  - Prescribed overdose [Unknown]
  - Crying [Recovered/Resolved]
  - Agitation [Recovered/Resolved]
  - Frustration tolerance decreased [Recovered/Resolved]
  - Illness [Unknown]

NARRATIVE: CASE EVENT DATE: 2007
